FAERS Safety Report 11529973 (Version 1)
Quarter: 2015Q3

REPORT INFORMATION
  Report Type: Report from Study
  Country: CZ (occurrence: CZ)
  Receive Date: 20150921
  Receipt Date: 20150921
  Transmission Date: 20151125
  Serious: Yes (Hospitalization)
  Sender: FDA-Public Use
  Company Number: CZ-JNJFOC-20150913315

PATIENT
  Age: 39 Year
  Sex: Male

DRUGS (4)
  1. MILURIT [Concomitant]
     Active Substance: ALLOPURINOL
     Route: 065
  2. HELICID [Concomitant]
     Route: 065
  3. SIMPONI [Suspect]
     Active Substance: GOLIMUMAB
     Indication: PSORIATIC ARTHROPATHY
     Route: 058
     Dates: start: 20141215, end: 20150815
  4. MICARDIS [Concomitant]
     Active Substance: TELMISARTAN
     Route: 065

REACTIONS (1)
  - IgA nephropathy [Unknown]

NARRATIVE: CASE EVENT DATE: 20150303
